FAERS Safety Report 10135860 (Version 1)
Quarter: 2014Q2

REPORT INFORMATION
  Report Type: Spontaneous
  Country: US (occurrence: US)
  Receive Date: 20140429
  Receipt Date: 20140429
  Transmission Date: 20141212
  Serious: Yes (Hospitalization)
  Sender: FDA-Public Use
  Company Number: US-ROCHE-1389750

PATIENT
  Age: 64 Year
  Sex: Female

DRUGS (3)
  1. TAMIFLU [Suspect]
     Indication: INFLUENZA
     Route: 065
     Dates: start: 20140409, end: 20140413
  2. PRILOSEC [Concomitant]
  3. RANITIDINE [Concomitant]

REACTIONS (4)
  - Influenza [Unknown]
  - Abdominal discomfort [Unknown]
  - Gastrooesophageal reflux disease [Unknown]
  - Insomnia [Unknown]
